FAERS Safety Report 19766041 (Version 3)
Quarter: 2021Q4

REPORT INFORMATION
  Report Type: Report from Study
  Country: US (occurrence: US)
  Receive Date: 20210830
  Receipt Date: 20211124
  Transmission Date: 20220304
  Serious: Yes (Hospitalization, Other)
  Sender: FDA-Public Use
  Company Number: NVSC2021US193832

PATIENT
  Age: 87 Year
  Sex: Male

DRUGS (1)
  1. ENTRESTO [Suspect]
     Active Substance: SACUBITRIL\VALSARTAN
     Indication: Cardiac failure
     Dosage: 50 MG, BID (SACUBITRIL: 24 MG VALSARTAN: 26 MG)
     Route: 048
     Dates: start: 202104

REACTIONS (4)
  - Renal failure [Unknown]
  - Hypotension [Unknown]
  - Intracardiac thrombus [Unknown]
  - Malaise [Unknown]

NARRATIVE: CASE EVENT DATE: 20210901
